FAERS Safety Report 4273524-8 (Version None)
Quarter: 2004Q1

REPORT INFORMATION
  Report Type: 
  Country: None (occurrence: None)
  Receive Date: 20040116
  Receipt Date: 20040116
  Transmission Date: 20041129
  Serious: Yes (Other)
  Sender: FDA-Public Use
  Company Number: None

PATIENT
  Age: 48 Year
  Sex: Female
  Weight: 63.5036 kg

DRUGS (1)
  1. VISINE EYE DROPS [Suspect]
     Dosage: 2 DROPS 1 TIME OPTHALAMIC
     Route: 047
     Dates: start: 20040115, end: 20040115

REACTIONS (2)
  - EYE BURNS [None]
  - PHARMACEUTICAL PRODUCT COMPLAINT [None]
